FAERS Safety Report 12836134 (Version 1)
Quarter: 2016Q4

REPORT INFORMATION
  Report Type: Spontaneous
  Country: GB (occurrence: GB)
  Receive Date: 20161011
  Receipt Date: 20161011
  Transmission Date: 20170207
  Serious: Yes (Hospitalization, Disabling)
  Sender: FDA-Public Use
  Company Number: GB-GE HEALTHCARE MEDICAL DIAGNOSTICS-OMPQ-PR-1610S-1815

PATIENT
  Age: 78 Year
  Sex: Female

DRUGS (13)
  1. COLECALCIFEROL [Concomitant]
     Active Substance: CHOLECALCIFEROL
  2. FERROUS FUMARATE [Concomitant]
     Active Substance: FERROUS FUMARATE
  3. BISOPROLOL [Concomitant]
     Active Substance: BISOPROLOL
  4. GLICLAZIDE [Concomitant]
     Active Substance: GLICLAZIDE
  5. OMNIPAQUE [Suspect]
     Active Substance: IOHEXOL
     Indication: DIAGNOSTIC PROCEDURE
  6. METFORMIN [Concomitant]
     Active Substance: METFORMIN HYDROCHLORIDE
  7. RAMIPRIL. [Concomitant]
     Active Substance: RAMIPRIL
  8. SIMVASTATIN. [Concomitant]
     Active Substance: SIMVASTATIN
  9. SPIRONOLACTON [Concomitant]
     Active Substance: SPIRONOLACTONE
  10. WARFARIN [Concomitant]
     Active Substance: WARFARIN
  11. OMNIPAQUE [Suspect]
     Active Substance: IOHEXOL
     Indication: PRODUCT USED FOR UNKNOWN INDICATION
     Route: 048
     Dates: start: 20160907, end: 20160907
  12. SOLIFENACIN [Concomitant]
     Active Substance: SOLIFENACIN
  13. DIGOXIN. [Concomitant]
     Active Substance: DIGOXIN

REACTIONS (1)
  - Nephropathy [Recovering/Resolving]

NARRATIVE: CASE EVENT DATE: 20160909
